FAERS Safety Report 5475338-X (Version None)
Quarter: 2007Q4

REPORT INFORMATION
  Report Type: 
  Country: None (occurrence: None)
  Receive Date: 20071001
  Receipt Date: 20061116
  Transmission Date: 20080405
  Serious: Yes (Death, Other)
  Sender: FDA-Public Use
  Company Number: 2007MP000504

PATIENT

DRUGS (2)
  1. GLIADEL [Suspect]
     Indication: GLIOBLASTOMA MULTIFORME
     Dosage: X1; ICER
  2. TEMOZOLOMIDE [Concomitant]

REACTIONS (11)
  - BRAIN ABSCESS [None]
  - CEREBRAL HAEMORRHAGE [None]
  - CONSTIPATION [None]
  - DEEP VEIN THROMBOSIS [None]
  - DISEASE PROGRESSION [None]
  - EMBOLISM VENOUS [None]
  - FALL [None]
  - FATIGUE [None]
  - NAUSEA [None]
  - PNEUMONIA STAPHYLOCOCCAL [None]
  - PULMONARY EMBOLISM [None]
